FAERS Safety Report 23796052 (Version 7)
Quarter: 2024Q3

REPORT INFORMATION
  Report Type: Report from Study
  Country: CO (occurrence: CO)
  Receive Date: 20240429
  Receipt Date: 20240910
  Transmission Date: 20241016
  Serious: Yes (Hospitalization, Other)
  Sender: ABBVIE
  Company Number: CO-ABBVIE-5737287

PATIENT
  Sex: Female
  Weight: 63 kg

DRUGS (6)
  1. VENCLEXTA [Suspect]
     Active Substance: VENETOCLAX
     Indication: Acute myeloid leukaemia
     Dosage: 7 DAY CYCLE?FORM STRENGTH: 100 MG
     Route: 048
     Dates: start: 20240521, end: 20240527
  2. VENCLEXTA [Suspect]
     Active Substance: VENETOCLAX
     Indication: Acute myeloid leukaemia
     Dosage: FORM STRENGTH: 100 MG
     Route: 048
     Dates: start: 20230614, end: 20240414
  3. ACYCLOVIR [Concomitant]
     Active Substance: ACYCLOVIR
     Indication: Acute myeloid leukaemia
     Dosage: FORM STRENGTH: 800 MG
     Route: 048
     Dates: start: 202306
  4. ONDANSETRON [Concomitant]
     Active Substance: ONDANSETRON
     Indication: Nausea
     Route: 048
     Dates: start: 202306
  5. AZACITIDINE [Concomitant]
     Active Substance: AZACITIDINE
     Indication: Acute myeloid leukaemia
     Route: 058
     Dates: start: 2023, end: 20240405
  6. AZACITIDINE [Concomitant]
     Active Substance: AZACITIDINE
     Indication: Acute myeloid leukaemia
     Dosage: FREQUENCY TEXT: PER 5 DAYS EVERY CYCLE
     Route: 058
     Dates: start: 2024, end: 202405

REACTIONS (12)
  - Immunodeficiency [Not Recovered/Not Resolved]
  - Headache [Not Recovered/Not Resolved]
  - Gait disturbance [Recovering/Resolving]
  - Nausea [Unknown]
  - Unevaluable event [Unknown]
  - Platelet count decreased [Recovering/Resolving]
  - Malaise [Not Recovered/Not Resolved]
  - Dizziness [Recovering/Resolving]
  - Anaemia [Recovering/Resolving]
  - Urinary tract infection [Unknown]
  - Haemoglobin decreased [Recovering/Resolving]
  - Full blood count decreased [Recovering/Resolving]

NARRATIVE: CASE EVENT DATE: 20230101
